FAERS Safety Report 4763612-1 (Version None)
Quarter: 2005Q3

REPORT INFORMATION
  Report Type: 
  Country: None (occurrence: None)
  Receive Date: 20050908
  Receipt Date: 20050905
  Transmission Date: 20060218
  Serious: Yes (Death, Hospitalization)
  Sender: FDA-Public Use
  Company Number: PHFR2005GB02947

PATIENT
  Age: 64 Year
  Sex: Female
  Weight: 62 kg

DRUGS (2)
  1. NEORAL [Suspect]
     Indication: RENAL TRANSPLANT
     Dosage: 150MG DAILY
     Route: 048
     Dates: start: 19961002
  2. PREDNISOLONE [Concomitant]
     Indication: IMMUNOSUPPRESSION
     Dosage: 5MG PER DAY
     Route: 065
     Dates: start: 19890923

REACTIONS (6)
  - ADENOMA BENIGN [None]
  - COLON CANCER [None]
  - HEPATIC LESION [None]
  - LAPAROTOMY [None]
  - METASTASES TO LIVER [None]
  - TUMOUR EXCISION [None]
